FAERS Safety Report 21511508 (Version 1)
Quarter: 2022Q4

REPORT INFORMATION
  Report Type: Spontaneous
  Country: SE (occurrence: SE)
  Receive Date: 20221027
  Receipt Date: 20221027
  Transmission Date: 20230113
  Serious: Yes (Hospitalization)
  Sender: FDA-Public Use
  Company Number: SE-MPA-2022-019749

PATIENT
  Age: 63 Year
  Sex: Female

DRUGS (8)
  1. ATORVASTATIN [Suspect]
     Active Substance: ATORVASTATIN
     Indication: Hyperlipidaemia
     Dosage: 1 UNK, DAILY, UNCLEAR STRENGTH.
     Route: 048
     Dates: start: 20070101, end: 20220803
  2. Insuman Basal SoloStar 100 IE/ml Injektionsvatska, suspension i forfyl [Concomitant]
     Indication: Product used for unknown indication
     Dosage: 100 IU/ML ACCORDING TO PRESCRIPTION
     Route: 065
     Dates: start: 2014
  3. Emgesan 250 mg Tablett [Concomitant]
     Indication: Product used for unknown indication
     Dosage: 250 MILLIGRAM, DAILY
     Route: 048
     Dates: start: 20191008
  4. Levaxin 75 mikrogram Tablett [Concomitant]
     Indication: Product used for unknown indication
     Dosage: 75 MCG, DAILY
     Route: 048
     Dates: start: 2015
  5. Humalog KwikPen 100 E/ml Injektionsvatska, losning i forfylld injektio [Concomitant]
     Indication: Product used for unknown indication
     Dosage: 100 U/ML ACCORDING TO PRESCRIPTION.
     Route: 065
     Dates: start: 2014
  6. ASPIRIN [Concomitant]
     Active Substance: ASPIRIN
     Indication: Product used for unknown indication
     Dosage: 75 MILLIGRAM, DAILY
     Route: 048
     Dates: start: 2014
  7. Liothyronin 20 mikrogram Tablett [Concomitant]
     Indication: Product used for unknown indication
     Dosage: 10 MCG, DAILY
     Route: 048
     Dates: start: 20150624
  8. HUMALOG [Concomitant]
     Active Substance: INSULIN LISPRO
     Indication: Product used for unknown indication
     Dosage: 100 E/ML ENLIGT ORDINATION.
     Route: 065
     Dates: start: 20141112

REACTIONS (1)
  - Autoimmune myositis [Recovering/Resolving]

NARRATIVE: CASE EVENT DATE: 20220801
